FAERS Safety Report 19256786 (Version 1)
Quarter: 2021Q2

REPORT INFORMATION
  Report Type: Report from Study
  Country: US (occurrence: US)
  Receive Date: 20210514
  Receipt Date: 20210514
  Transmission Date: 20210717
  Serious: Yes (Hospitalization, Other)
  Sender: FDA-Public Use
  Company Number: US-GILEAD-2021-0528642

PATIENT
  Sex: Male

DRUGS (22)
  1. BELBUCA [Concomitant]
     Active Substance: BUPRENORPHINE HYDROCHLORIDE
  2. DOFETILIDE. [Concomitant]
     Active Substance: DOFETILIDE
  3. CARVEDILOL. [Concomitant]
     Active Substance: CARVEDILOL
  4. FLUOXETINE [Concomitant]
     Active Substance: FLUOXETINE HYDROCHLORIDE
  5. FUROSEMIDE. [Concomitant]
     Active Substance: FUROSEMIDE
  6. HYDROCORT 1 A PHARMA [Concomitant]
  7. INCRUSE ELLIPTA [Concomitant]
     Active Substance: UMECLIDINIUM BROMIDE
  8. LEVOTHYROXINE. [Concomitant]
     Active Substance: LEVOTHYROXINE
  9. AMOXICILLIN + CLAVULANIC ACID [Concomitant]
     Active Substance: AMOXICILLIN\CLAVULANIC ACID
  10. CIPROFLOXACIN. [Concomitant]
     Active Substance: CIPROFLOXACIN
  11. TRINTELLIX [Concomitant]
     Active Substance: VORTIOXETINE HYDROBROMIDE
  12. ENTRESTO [Concomitant]
     Active Substance: SACUBITRIL\VALSARTAN
  13. SOLIFENACIN [Concomitant]
     Active Substance: SOLIFENACIN
  14. TIZANIDINE. [Concomitant]
     Active Substance: TIZANIDINE
  15. BENZONATATE. [Concomitant]
     Active Substance: BENZONATATE
  16. BUPRENORPHINE. [Concomitant]
     Active Substance: BUPRENORPHINE
  17. SYNTHROID [Concomitant]
     Active Substance: LEVOTHYROXINE SODIUM
  18. ARNUITY ELLIPTA [Concomitant]
     Active Substance: FLUTICASONE FUROATE
  19. ATORVASTATIN [Concomitant]
     Active Substance: ATORVASTATIN
  20. AZTREONAM LYSINE [Suspect]
     Active Substance: AZTREONAM LYSINE
     Indication: BRONCHIECTASIS
     Dosage: 1 VIAL, TID, FOR 1 MONTH ON AND 1 MONTH OFF
     Route: 055
     Dates: start: 20190730
  21. POTASSIUM CHLORIDE. [Concomitant]
     Active Substance: POTASSIUM CHLORIDE
  22. XARELTO [Concomitant]
     Active Substance: RIVAROXABAN

REACTIONS (2)
  - Off label use [Not Recovered/Not Resolved]
  - Pneumonia [Unknown]
